FAERS Safety Report 21064343 (Version 1)
Quarter: 2022Q3

REPORT INFORMATION
  Report Type: Spontaneous
  Country: IT (occurrence: IT)
  Receive Date: 20220711
  Receipt Date: 20220711
  Transmission Date: 20221027
  Serious: Yes (Life-Threatening, Hospitalization, Other)
  Sender: FDA-Public Use
  Company Number: IT-MACLEODS PHARMACEUTICALS US LTD-MAC2022036354

PATIENT

DRUGS (5)
  1. LEVOFLOXACIN [Suspect]
     Active Substance: LEVOFLOXACIN
     Indication: Pneumonia legionella
     Dosage: 750 MILLIGRAM, QD, ON THE17TH DAY, IT WAS SUSPENDED,  RESUMED ON 19TH DAY
     Route: 042
  2. LEVOFLOXACIN [Suspect]
     Active Substance: LEVOFLOXACIN
     Dosage: 1500 MILLIGRAM, QD,
     Route: 042
  3. PIPERACILLIN SODIUM\TAZOBACTAM SODIUM [Concomitant]
     Active Substance: PIPERACILLIN SODIUM\TAZOBACTAM SODIUM
     Indication: Antibiotic prophylaxis
     Dosage: 13.5  GRAM, QD
     Route: 042
  4. RIFAMPIN [Concomitant]
     Active Substance: RIFAMPIN
     Indication: Infection prophylaxis
     Dosage: 900 MILLIGRAM, QD
     Route: 065
  5. FLUCONAZOLE [Concomitant]
     Active Substance: FLUCONAZOLE
     Indication: Legionella infection
     Dosage: 800 MILLIGRAM, QD
     Route: 042

REACTIONS (3)
  - Eosinophilic pneumonia [Recovered/Resolved]
  - Lung infiltration [Recovered/Resolved]
  - Acute respiratory distress syndrome [Recovered/Resolved]
